FAERS Safety Report 5589221-2 (Version None)
Quarter: 2008Q1

REPORT INFORMATION
  Report Type: 
  Country: None (occurrence: None)
  Receive Date: 20080114
  Receipt Date: 20080109
  Transmission Date: 20080703
  Serious: Yes (Death, Hospitalization)
  Sender: FDA-Public Use
  Company Number: PHRM2008FR00468

PATIENT
  Age: 69 Year
  Sex: Female

DRUGS (10)
  1. STRONTIUM RANELATE [Suspect]
     Dosage: UNK, UNK
     Route: 048
     Dates: start: 20070716, end: 20070818
  2. IDEOS [Suspect]
     Indication: OSTEOPOROSIS
     Route: 048
     Dates: start: 20070716, end: 20070816
  3. VOLTAREN [Suspect]
     Indication: PAIN
     Route: 061
     Dates: start: 20070716, end: 20070816
  4. DOLIPRANE [Suspect]
     Indication: PAIN
     Route: 048
     Dates: start: 20070716, end: 20070728
  5. DOLIPRANE [Suspect]
     Dosage: 1 G DAILY
     Dates: start: 20070824
  6. SOLU-MEDROL [Suspect]
     Route: 048
     Dates: start: 20070816, end: 20070821
  7. SOLU-MEDROL [Suspect]
     Dosage: 20 MG, TID
     Route: 042
     Dates: start: 20070829
  8. AERIUS [Concomitant]
     Indication: RASH
     Dosage: UNK, UNK
     Route: 048
     Dates: start: 20070814, end: 20070829
  9. CELESTAMINE TAB [Concomitant]
     Indication: RASH
     Route: 048
     Dates: start: 20070814, end: 20070816
  10. STILNOX                                 /FRA/ [Concomitant]
     Dosage: UNK, UNK
     Route: 048
     Dates: end: 20070829

REACTIONS (43)
  - ALANINE AMINOTRANSFERASE INCREASED [None]
  - ASPARTATE AMINOTRANSFERASE INCREASED [None]
  - BILIRUBIN CONJUGATED INCREASED [None]
  - BLOOD ALKALINE PHOSPHATASE INCREASED [None]
  - BLOOD BILIRUBIN INCREASED [None]
  - BLOOD CREATININE INCREASED [None]
  - BLOOD LACTIC ACID INCREASED [None]
  - BLOOD UREA INCREASED [None]
  - C-REACTIVE PROTEIN INCREASED [None]
  - CARDIOGENIC SHOCK [None]
  - CYTOLYTIC HEPATITIS [None]
  - DIALYSIS [None]
  - DIARRHOEA [None]
  - DRUG RASH WITH EOSINOPHILIA AND SYSTEMIC SYMPTOMS [None]
  - ENANTHEMA [None]
  - ENDOTRACHEAL INTUBATION [None]
  - EOSINOPHILIA [None]
  - FACTOR V DEFICIENCY [None]
  - GAMMA-GLUTAMYLTRANSFERASE INCREASED [None]
  - GLASGOW COMA SCALE ABNORMAL [None]
  - HAEMOGLOBIN DECREASED [None]
  - HEPATIC FAILURE [None]
  - HEPATIC NECROSIS [None]
  - HEPATITIS A ANTIBODY POSITIVE [None]
  - HEPATITIS CHOLESTATIC [None]
  - HEPATITIS FULMINANT [None]
  - HEPATITIS VIRAL [None]
  - HUMAN HERPES VIRUS 6 SEROLOGY POSITIVE [None]
  - INFLAMMATION [None]
  - JAUNDICE [None]
  - LEUKOCYTOSIS [None]
  - MECHANICAL VENTILATION [None]
  - MULTI-ORGAN FAILURE [None]
  - NAUSEA [None]
  - OEDEMA [None]
  - PROTHROMBIN TIME RATIO DECREASED [None]
  - PYREXIA [None]
  - RASH [None]
  - RASH MACULO-PAPULAR [None]
  - RASH MORBILLIFORM [None]
  - RENAL FAILURE ACUTE [None]
  - SKIN EXFOLIATION [None]
  - SOMNOLENCE [None]
